FAERS Safety Report 24704558 (Version 1)
Quarter: 2024Q4

REPORT INFORMATION
  Report Type: Spontaneous
  Country: US (occurrence: US)
  Receive Date: 20241206
  Receipt Date: 20241206
  Transmission Date: 20250114
  Serious: Yes (Other)
  Sender: COOPERSURGICAL
  Company Number: US-COOPERSURGICAL, INC.-2024CPS003729

PATIENT
  Sex: Female
  Weight: 81.633 kg

DRUGS (1)
  1. PARAGARD T 380A [Suspect]
     Active Substance: COPPER
     Indication: Contraception
     Dosage: UNK
     Route: 015
     Dates: start: 20130228

REACTIONS (23)
  - Autoimmune thyroiditis [Not Recovered/Not Resolved]
  - Diabetes mellitus [Not Recovered/Not Resolved]
  - Gallbladder disorder [Unknown]
  - Uterine leiomyoma [Unknown]
  - Reproductive complication associated with device [Unknown]
  - Device breakage [Unknown]
  - Foreign body in reproductive tract [Unknown]
  - Complication of device removal [Unknown]
  - Abortion spontaneous [Unknown]
  - Hormone level abnormal [Unknown]
  - Irritable bowel syndrome [Unknown]
  - Postoperative adhesion [Unknown]
  - Emotional distress [Not Recovered/Not Resolved]
  - Depression [Unknown]
  - Abdominal pain upper [Unknown]
  - Immune system disorder [Unknown]
  - Coagulopathy [Not Recovered/Not Resolved]
  - Obesity [Unknown]
  - Migraine [Unknown]
  - Endometriosis [Unknown]
  - Endosalpingiosis [Unknown]
  - Back pain [Unknown]
  - Unevaluable event [Unknown]

NARRATIVE: CASE EVENT DATE: 20190101
